FAERS Safety Report 25660101 (Version 2)
Quarter: 2025Q3

REPORT INFORMATION
  Report Type: Spontaneous
  Country: EU (occurrence: EU)
  Receive Date: 20250808
  Receipt Date: 20250822
  Transmission Date: 20251021
  Serious: Yes (Hospitalization, Disabling, Other)
  Sender: PFIZER
  Company Number: None

PATIENT
  Age: 68 Year
  Sex: Male
  Weight: 43 kg

DRUGS (4)
  1. LINEZOLID [Suspect]
     Active Substance: LINEZOLID
     Indication: Mycobacterium abscessus infection
     Dosage: 1 DF, 1X/DAY
     Route: 048
     Dates: start: 20250404, end: 20250704
  2. AZITHROMYCIN [Concomitant]
     Active Substance: AZITHROMYCIN
  3. CLOFAZIMINE [Concomitant]
     Active Substance: CLOFAZIMINE
  4. MINOCYCLINE [Concomitant]
     Active Substance: MINOCYCLINE HYDROCHLORIDE

REACTIONS (6)
  - Orthostatic hypotension [Recovered/Resolved]
  - Malaise [Recovered/Resolved]
  - Syncope [Recovered/Resolved]
  - Fall [Recovered/Resolved]
  - Vertigo [Unknown]
  - Off label use [Unknown]

NARRATIVE: CASE EVENT DATE: 20250404
